FAERS Safety Report 7952782-X (Version None)
Quarter: 2011Q4

REPORT INFORMATION
  Report Type: 
  Country: None (occurrence: None)
  Receive Date: 20111129
  Receipt Date: 20111115
  Transmission Date: 20120403
  Serious: Yes (Other)
  Sender: FDA-Public Use
  Company Number: 2011MA016701

PATIENT
  Age: 30 Year
  Sex: Male

DRUGS (5)
  1. VALPROIC ACID [Suspect]
     Dosage: 2000 MG
     Dates: end: 20111028
  2. CITALOPRAM HYDROBROMIDE [Suspect]
  3. CLOZARIL [Suspect]
     Indication: SCHIZOPHRENIA
     Dosage: 575 MG; ;PO
     Route: 048
     Dates: start: 20110329
  4. HALOPERIDOL [Concomitant]
  5. DEPAKOTE [Concomitant]

REACTIONS (9)
  - CONVULSION [None]
  - MENTAL DISORDER [None]
  - AGGRESSION [None]
  - COGNITIVE DISORDER [None]
  - PSYCHOTIC DISORDER [None]
  - DELIRIUM [None]
  - GRANDIOSITY [None]
  - HEART RATE INCREASED [None]
  - PERSECUTORY DELUSION [None]
